FAERS Safety Report 6327217-3 (Version None)
Quarter: 2009Q3

REPORT INFORMATION
  Report Type: 
  Country: None (occurrence: None)
  Receive Date: 20090825
  Receipt Date: 20090813
  Transmission Date: 20100115
  Serious: Yes (Hospitalization, Other)
  Sender: FDA-Public Use
  Company Number: US-ELI_LILLY_AND_COMPANY-US200908004628

PATIENT
  Sex: Female

DRUGS (28)
  1. FORTEO [Suspect]
     Dosage: UNK, UNK
     Route: 058
     Dates: start: 20090324
  2. CEFTIN [Concomitant]
     Dosage: 500 MG, 2/D
  3. ADVAIR HFA [Concomitant]
     Dosage: 50/500 TWO PUFFS A DAY
  4. EXPECTORANT [Concomitant]
     Dosage: UNK, AS NEEDED
     Route: 048
  5. NOVOLOG MIX 70/30 [Concomitant]
     Dosage: 34 U, EACH MORNING
     Route: 058
  6. XOPENEX [Concomitant]
     Dosage: 1.25/3 ML
  7. SYNTHROID [Concomitant]
     Dosage: .1 UG, DAILY (1/D)
     Route: 048
  8. LISINOPRIL [Concomitant]
     Dosage: 20 MG, DAILY (1/D)
     Route: 048
  9. SINGULAIR [Concomitant]
     Dosage: 10 MG, EACH EVENING
     Route: 048
  10. MIRALAX [Concomitant]
     Dosage: 17 MG, DAILY (1/D)
     Route: 048
  11. PREDNISONE TAB [Concomitant]
     Dosage: 20 MG, DAILY (1/D)
     Route: 048
  12. ZOCOR [Concomitant]
     Dosage: 40 MG, DAILY
     Route: 048
  13. BACTRIM DS [Concomitant]
     Dosage: ONE DAILY (1/D)
     Route: 048
  14. COUMADIN [Concomitant]
     Dosage: 2 MG, DAILY (1/D)
  15. XANAX [Concomitant]
     Dosage: 0.5 MG, EVERY 8 HOURS AS NEEDED
     Route: 048
  16. AMBIEN [Concomitant]
     Indication: SLEEP DISORDER
  17. PERCOCET [Concomitant]
     Dosage: 10/325, EVERY 6 HRS AS NEEDED
     Route: 048
  18. ACIPHEX [Concomitant]
     Dosage: 20 MG, 2/D
  19. VITAMIN B-12 [Concomitant]
     Dosage: ONCE EVERY 2 WEEKS
  20. BIAXIN [Concomitant]
     Dosage: 500 MG, 2/D
  21. MILK OF MAGNESIA TAB [Concomitant]
     Dosage: UNK, 2/D
  22. MUCINEX [Concomitant]
     Dosage: 600 MG, 4/D
  23. MULTI-VITAMIN [Concomitant]
     Dosage: 1 D/F, DAILY (1/D)
  24. NOVOLOG [Concomitant]
     Dosage: SLINDING SCALE
  25. LEVAMIN [Concomitant]
  26. OXYGEN [Concomitant]
     Dosage: 3 LITER ALL THE TIME
  27. SPIRONOLACTONE [Concomitant]
     Dosage: 25 MG, DAILY (1/D)
  28. ASPIRIN [Concomitant]
     Dosage: 81 MG, DAILY (1/D)

REACTIONS (5)
  - ASTHENIA [None]
  - DYSPNOEA [None]
  - INSOMNIA [None]
  - MUSCLE SPASMS [None]
  - MUSCULAR WEAKNESS [None]
